FAERS Safety Report 15117199 (Version 1)
Quarter: 2018Q3

REPORT INFORMATION
  Report Type: Spontaneous
  Country: US (occurrence: US)
  Receive Date: 20180706
  Receipt Date: 20180706
  Transmission Date: 20181010
  Serious: No
  Sender: FDA-Public Use
  Company Number: US-PURDUE-USA-2017-0141995

PATIENT
  Sex: Female

DRUGS (1)
  1. DRONABINOL CAPSULES [Suspect]
     Active Substance: DRONABINOL
     Indication: NERVE INJURY
     Dosage: 5 MG, UNK
     Route: 048
     Dates: start: 201711

REACTIONS (2)
  - Product storage error [Unknown]
  - Off label use [Unknown]
